FAERS Safety Report 19827741 (Version 5)
Quarter: 2022Q1

REPORT INFORMATION
  Report Type: Report from Study
  Country: RU (occurrence: None)
  Receive Date: 20210914
  Receipt Date: 20220111
  Transmission Date: 20220423
  Serious: Yes (Hospitalization)
  Sender: FDA-Public Use
  Company Number: RU-ROCHE-2907821

PATIENT
  Age: 66 Year
  Sex: Female
  Weight: 78 kg

DRUGS (17)
  1. ATEZOLIZUMAB [Suspect]
     Active Substance: ATEZOLIZUMAB
     Indication: Bile duct cancer
     Dosage: START DATE OF MOST RECENT DOSE (1200 MG) OF STUDY DRUG PRIOR TO SAE: 31/AUG/2021
     Route: 042
     Dates: start: 20210720
  2. BEVACIZUMAB [Suspect]
     Active Substance: BEVACIZUMAB
     Indication: Bile duct cancer
     Dosage: START DATE OF MOST RECENT DOSE OF STUDY DRUG PRIOR TO SAE:31/AUG/2021
     Route: 042
     Dates: start: 20210720
  3. CISPLATIN [Suspect]
     Active Substance: CISPLATIN
     Indication: Bile duct cancer
     Dosage: START DATE OF MOST RECENT DOSE OF STUDY DRUG (43 MG) PRIOR TO SAE: 31/AUG/2021?ON DAYS 1 AND 8 OF EA
     Route: 042
     Dates: start: 20210720
  4. GEMCITABINE [Suspect]
     Active Substance: GEMCITABINE
     Indication: Bile duct cancer
     Dosage: START DATE OF MOST RECENT DOSE OF STUDY DRUG (1710 MG) PRIOR TO SAE: 31/AUG/2021? ON DAY 1 OF EACH 2
     Route: 042
     Dates: start: 20210720
  5. AMLODIPINE [Concomitant]
     Active Substance: AMLODIPINE BESYLATE
     Indication: Hypertension
  6. EMEND [Concomitant]
     Active Substance: APREPITANT
     Indication: Premedication
     Dates: start: 20210810, end: 20210812
  7. EMEND [Concomitant]
     Active Substance: APREPITANT
     Dates: start: 20210817, end: 20210819
  8. EMEND [Concomitant]
     Active Substance: APREPITANT
     Dates: start: 20210831, end: 20210831
  9. DEXAMETHASONE [Concomitant]
     Active Substance: DEXAMETHASONE
     Indication: Premedication
     Dates: start: 20210810, end: 20210810
  10. DEXAMETHASONE [Concomitant]
     Active Substance: DEXAMETHASONE
     Dates: start: 20210817, end: 20210817
  11. DEXAMETHASONE [Concomitant]
     Active Substance: DEXAMETHASONE
     Dates: start: 20210831, end: 20210831
  12. ONDANSETRON [Concomitant]
     Active Substance: ONDANSETRON
     Indication: Premedication
     Dates: start: 20210810, end: 20210810
  13. ONDANSETRON [Concomitant]
     Active Substance: ONDANSETRON
     Dates: start: 20210817, end: 20210817
  14. ONDANSETRON [Concomitant]
     Active Substance: ONDANSETRON
     Dates: start: 20210831, end: 20210831
  15. FAMOTIDINE [Concomitant]
     Active Substance: FAMOTIDINE
     Indication: Premedication
     Dates: start: 20210810, end: 20210810
  16. FAMOTIDINE [Concomitant]
     Active Substance: FAMOTIDINE
     Dates: start: 20210817, end: 20210817
  17. FAMOTIDINE [Concomitant]
     Active Substance: FAMOTIDINE
     Dates: start: 20210831, end: 20210831

REACTIONS (1)
  - Anaemia [Not Recovered/Not Resolved]

NARRATIVE: CASE EVENT DATE: 20210831
